FAERS Safety Report 9524634 (Version 2)
Quarter: 2013Q4

REPORT INFORMATION
  Report Type: Spontaneous
  Country: BR (occurrence: BR)
  Receive Date: 20130916
  Receipt Date: 20131017
  Transmission Date: 20140711
  Serious: Yes (Other)
  Sender: FDA-Public Use
  Company Number: BR-PFIZER INC-2013264038

PATIENT
  Age: 50 Year
  Sex: Female

DRUGS (1)
  1. LYRICA [Suspect]
     Indication: PAIN
     Dosage: 2X/DAY (IN THE MORNING AND AT NIGHT)
     Route: 048

REACTIONS (5)
  - Musculoskeletal disorder [Unknown]
  - Increased appetite [Recovering/Resolving]
  - Elevated mood [Unknown]
  - Alopecia [Not Recovered/Not Resolved]
  - Spinal pain [Unknown]
